FAERS Safety Report 16429067 (Version 5)
Quarter: 2019Q3

REPORT INFORMATION
  Report Type: Spontaneous
  Country: US (occurrence: US)
  Receive Date: 20190614
  Receipt Date: 20190917
  Transmission Date: 20191004
  Serious: No
  Sender: FDA-Public Use
  Company Number: PHEH2019US024563

PATIENT
  Sex: Male

DRUGS (6)
  1. AFINITOR [Suspect]
     Active Substance: EVEROLIMUS
     Indication: PROSTATE CANCER
     Dosage: 5 MG, QD
     Route: 048
  2. LENVATINIB [Suspect]
     Active Substance: LENVATINIB
     Indication: RENAL CANCER
     Dosage: 18 MG, QD
     Route: 048
  3. LENVATINIB [Suspect]
     Active Substance: LENVATINIB
     Indication: TONGUE NEOPLASM MALIGNANT STAGE UNSPECIFIED
  4. AFINITOR [Suspect]
     Active Substance: EVEROLIMUS
     Indication: TONGUE NEOPLASM MALIGNANT STAGE UNSPECIFIED
     Dosage: 5 MG, QD
     Route: 048
  5. LENVATINIB [Suspect]
     Active Substance: LENVATINIB
     Indication: PROSTATE CANCER
     Dosage: 14 MG, QD
     Route: 065
  6. AFINITOR [Suspect]
     Active Substance: EVEROLIMUS
     Indication: RENAL CANCER
     Dosage: 5 MG, QD
     Route: 048

REACTIONS (12)
  - Faeces hard [Unknown]
  - Saliva altered [Unknown]
  - Abdominal pain upper [Unknown]
  - Faeces discoloured [Unknown]
  - Abdominal distension [Unknown]
  - Protein urine present [Unknown]
  - Flatulence [Unknown]
  - Dysphonia [Unknown]
  - Blood glucose fluctuation [Unknown]
  - Diarrhoea [Unknown]
  - Blood phosphorus decreased [Recovered/Resolved]
  - Blood iron decreased [Recovered/Resolved]
